FAERS Safety Report 14732918 (Version 4)
Quarter: 2019Q1

REPORT INFORMATION
  Report Type: Spontaneous
  Country: US (occurrence: US)
  Receive Date: 20180409
  Receipt Date: 20190213
  Transmission Date: 20190417
  Serious: No
  Sender: FDA-Public Use
  Company Number: US-PFIZER INC-2014201836

PATIENT
  Age: 87 Year
  Sex: Male
  Weight: 86 kg

DRUGS (22)
  1. LYRICA [Suspect]
     Active Substance: PREGABALIN
     Dosage: 75 MG, 3X/DAY
     Route: 048
     Dates: end: 201809
  2. GLIPIZIDE XL [Concomitant]
     Active Substance: GLIPIZIDE
     Dosage: 20 MG, 2X/DAY (10 MG 2, 2X DAY)
     Route: 048
  3. VITAMIN B12 [Concomitant]
     Active Substance: CYANOCOBALAMIN
     Dosage: UNK
  4. OMEPRAZOLE. [Concomitant]
     Active Substance: OMEPRAZOLE
     Indication: GASTRIC ULCER
     Dosage: 20 MG, 1X/DAY
  5. COENZYME Q10 [Concomitant]
     Active Substance: UBIDECARENONE
     Dosage: 100 MG, UNK
  6. TYLENOL [Concomitant]
     Active Substance: ACETAMINOPHEN
     Dosage: 650 MG, AS NEEDED [Q8]
  7. LYRICA [Suspect]
     Active Substance: PREGABALIN
     Indication: DIABETIC NEUROPATHY
     Dosage: 75 MG, 3X/DAY
     Route: 048
  8. LYRICA [Suspect]
     Active Substance: PREGABALIN
     Indication: TYPE 2 DIABETES MELLITUS
     Dosage: 75 MG, 1X/DAY(EVERY NIGHT AT BEDTIME)
     Route: 048
  9. TAMSULOSIN [Concomitant]
     Active Substance: TAMSULOSIN
     Indication: PROSTATOMEGALY
     Dosage: 0.4 MG, 1X/DAY
  10. LYRICA [Suspect]
     Active Substance: PREGABALIN
     Indication: NEUROPATHY PERIPHERAL
     Dosage: 75 MG, 3X/DAY
     Route: 048
  11. DONEPEZIL. [Concomitant]
     Active Substance: DONEPEZIL
     Indication: COGNITIVE DISORDER
     Dosage: 10 MG, 1X/DAY
  12. NASONEX [Concomitant]
     Active Substance: MOMETASONE FUROATE
     Dosage: UNK
  13. NORTRIPTYLINE [Concomitant]
     Active Substance: NORTRIPTYLINE
     Dosage: 50 MG, 1X/DAY
     Route: 048
  14. HYDROCODONE BITARTRATE AND ACETAMINOPHEN [Concomitant]
     Active Substance: ACETAMINOPHEN\HYDROCODONE BITARTRATE
     Indication: PAIN
     Dosage: [HYDROCODONE BITARTRATE 5/ PARACETAMOL 375], AS NEEDED (Q4)
  15. VITAMIN D [Concomitant]
     Active Substance: CHOLECALCIFEROL
     Dosage: 5000 IU, UNK
  16. METFORMIN ER [Concomitant]
     Active Substance: METFORMIN HYDROCHLORIDE
     Dosage: 2000 MG, 1X/DAY (500MG 4QD)
  17. PRIMIDONE. [Concomitant]
     Active Substance: PRIMIDONE
     Indication: ESSENTIAL TREMOR
     Dosage: 100 MG, 1X/DAY (50 MG 2 QD)
  18. LYRICA [Suspect]
     Active Substance: PREGABALIN
     Indication: NEURALGIA
     Dosage: 75 MG, DAILY
     Route: 048
  19. FISH OIL [Concomitant]
     Active Substance: FISH OIL
     Dosage: 1000 IU, UNK
  20. BABY ASPIRIN [Concomitant]
     Active Substance: ASPIRIN
     Dosage: UNK, ^81 GM^
  21. IBUPROFEN. [Concomitant]
     Active Substance: IBUPROFEN
     Dosage: 200 MG, AS NEEDED [Q6]
     Route: 048
  22. XARELTO [Concomitant]
     Active Substance: RIVAROXABAN
     Dosage: 20 MG, 1X/DAY

REACTIONS (4)
  - Pain [Unknown]
  - Muscle twitching [Unknown]
  - Intentional product use issue [Unknown]
  - Sleep disorder [Unknown]
